FAERS Safety Report 10242170 (Version 5)
Quarter: 2014Q4

REPORT INFORMATION
  Report Type: Spontaneous
  Country: JP (occurrence: JP)
  Receive Date: 20140617
  Receipt Date: 20141205
  Transmission Date: 20150528
  Serious: Yes (Other)
  Sender: FDA-Public Use
  Company Number: JP-PFIZER INC-2014150800

PATIENT
  Age: 46 Year
  Sex: Male
  Weight: 59.7 kg

DRUGS (11)
  1. VFEND [Suspect]
     Active Substance: VORICONAZOLE
     Dosage: 350 MG, 1X/DAY
     Route: 042
     Dates: start: 20140513, end: 20140519
  2. MEROPEN [Concomitant]
     Active Substance: MEROPENEM
     Indication: DEVICE RELATED INFECTION
     Dosage: 3 G, 3X/DAY
     Route: 042
     Dates: start: 20140508, end: 20140512
  3. PARIET [Concomitant]
     Active Substance: RABEPRAZOLE SODIUM
     Dosage: 10 MG, 1X/DAY
     Route: 048
     Dates: start: 20140423
  4. ZYLORIC [Concomitant]
     Active Substance: ALLOPURINOL
     Dosage: 100 MG, 1X/DAY
     Route: 048
     Dates: start: 2013
  5. MAGNESIUM OXIDE. [Concomitant]
     Active Substance: MAGNESIUM OXIDE
     Dosage: 990 MG, 3X/DAY
     Route: 048
  6. VFEND [Suspect]
     Active Substance: VORICONAZOLE
     Indication: PNEUMONIA
     Dosage: 350 MG, 2X/DAY
     Route: 042
     Dates: start: 20140512, end: 20140512
  7. MICAFUNGIN [Concomitant]
     Active Substance: MICAFUNGIN
     Indication: ASPERGILLUS INFECTION
     Dosage: 150 MG, DAILY
     Route: 042
     Dates: end: 20140512
  8. VFEND [Suspect]
     Active Substance: VORICONAZOLE
     Indication: PNEUMONIA
     Dosage: 300 MG, DAILY
     Route: 048
     Dates: start: 20140520
  9. VANCOMYCIN [Concomitant]
     Active Substance: VANCOMYCIN
     Indication: DEVICE RELATED INFECTION
     Dosage: 2G TO 3G TWICE A DAY OR THRICE A DAY
     Route: 042
     Dates: start: 20140506, end: 20140519
  10. PASIL [Concomitant]
     Active Substance: PAZUFLOXACIN MESILATE
     Indication: PNEUMONIA
     Dosage: 1000 MG, 2X/DAY
     Route: 042
     Dates: start: 20140512, end: 20140525
  11. GRAN [Concomitant]
     Active Substance: FILGRASTIM
     Indication: WHITE BLOOD CELL COUNT DECREASED
     Dosage: 150 UG, 1X/DAY
     Route: 058
     Dates: start: 20140503, end: 20140513

REACTIONS (3)
  - Aneurysm [Unknown]
  - Delirium [Recovering/Resolving]
  - IIIrd nerve paralysis [Recovering/Resolving]

NARRATIVE: CASE EVENT DATE: 20140513
